FAERS Safety Report 24747442 (Version 1)
Quarter: 2024Q4

REPORT INFORMATION
  Report Type: Spontaneous
  Country: US (occurrence: US)
  Receive Date: 20241218
  Receipt Date: 20241218
  Transmission Date: 20250114
  Serious: No
  Sender: REVANCE THERAPEUTICS
  Company Number: US-REVANCE THERAPEUTICS INC.-US-REV-2024-000541

PATIENT

DRUGS (4)
  1. DAXIBOTULINUMTOXIN A-LANM [Suspect]
     Active Substance: DAXIBOTULINUMTOXIN A-LANM
     Indication: Skin wrinkling
     Dosage: 12 BOTOX EQUIVALENT UNITS TO GLABELLA, 4 BOTOX EQU.UNITS TO BUNNY LINES, 14 BOTOX EQU. UNITS TO CROW
     Route: 065
     Dates: start: 20240827
  2. BOTOX [Suspect]
     Active Substance: ONABOTULINUMTOXINA
     Indication: Product used for unknown indication
     Dosage: 6 UNITS TO CHIN, 6 UNITS TO DAO, 20 UNITS TO NEFERTITI LINES
     Route: 065
     Dates: start: 20240827
  3. HYALURONIC ACID\LIDOCAINE [Suspect]
     Active Substance: HYALURONIC ACID\LIDOCAINE
     Indication: Product used for unknown indication
     Dosage: UNK (LIP, LATERAL LIP AND MARIONETTES)
     Route: 065
     Dates: start: 20240827
  4. HYALURONIC ACID [Suspect]
     Active Substance: HYALURONIC ACID
     Indication: Product used for unknown indication
     Dosage: UNK (CHEEKS)
     Route: 065
     Dates: start: 20240827

REACTIONS (11)
  - Tenderness [Unknown]
  - Induration [Unknown]
  - Swelling [Unknown]
  - Pain [Unknown]
  - Tenderness [Unknown]
  - Induration [Unknown]
  - Skin mass [Unknown]
  - Infection [Unknown]
  - Erythema [Unknown]
  - Erythema [Unknown]
  - Off label use [Unknown]

NARRATIVE: CASE EVENT DATE: 20240827
